FAERS Safety Report 18001062 (Version 1)
Quarter: 2020Q3

REPORT INFORMATION
  Report Type: Spontaneous
  Country: CA (occurrence: CA)
  Receive Date: 20200709
  Receipt Date: 20200709
  Transmission Date: 20201103
  Serious: Yes (Hospitalization)
  Sender: FDA-Public Use
  Company Number: CA-TEVA-2020-CA-1797687

PATIENT
  Age: 6 Year
  Sex: Female

DRUGS (2)
  1. ETOPOSIDE INJECTION [Suspect]
     Active Substance: ETOPOSIDE
     Route: 065
  2. CYTARABINE 10ML + 20ML SINGLE DOSE VIALS [Suspect]
     Active Substance: CYTARABINE
     Route: 065

REACTIONS (1)
  - Febrile neutropenia [Recovering/Resolving]
